FAERS Safety Report 7527853-2 (Version None)
Quarter: 2011Q2

REPORT INFORMATION
  Report Type: 
  Country: None (occurrence: None)
  Receive Date: 20110531
  Receipt Date: 20110516
  Transmission Date: 20111010
  Serious: Yes (Hospitalization)
  Sender: FDA-Public Use
  Company Number: US-2011-10299

PATIENT

DRUGS (10)
  1. SULFAMETHOXAZOLE AND TRIMETHOPRIM (SULFAMETHOXAZOLE, TRIMETHOPRIM) [Concomitant]
  2. GRANULOCYTE COLONY STIMULATING FACTOR (GRANULOCYTE COLONY STIMULATING [Concomitant]
  3. FLUCONAZOLE [Concomitant]
  4. FLUDARA [Suspect]
     Indication: BONE MARROW TRANSPLANT
     Dosage: 30 MG/M2, DAILY DOSE, IV DRIP
     Route: 041
  5. FLUDARA [Suspect]
     Indication: HAEMATOLOGICAL MALIGNANCY
     Dosage: 30 MG/M2, DAILY DOSE, IV DRIP
     Route: 041
  6. POLYMYXIN B SULFATE (POLYMYXIN B SULFATE) [Concomitant]
  7. BUSULFEX [Suspect]
     Dosage: 0.8 MG/KG, Q12HR, IV DRIP
     Route: 041
  8. ACYCLOVIR [Concomitant]
  9. METHOTREXATE [Concomitant]
  10. CYCLOSPORINE [Concomitant]

REACTIONS (2)
  - TOXICITY TO VARIOUS AGENTS [None]
  - SUBDURAL HAEMATOMA [None]
